FAERS Safety Report 8175363-4 (Version None)
Quarter: 2012Q1

REPORT INFORMATION
  Report Type: 
  Country: None (occurrence: None)
  Receive Date: 20120229
  Receipt Date: 20120224
  Transmission Date: 20120608
  Serious: Yes (Other)
  Sender: FDA-Public Use
  Company Number: US-PFIZER INC-2012023616

PATIENT
  Sex: Female
  Weight: 91 kg

DRUGS (10)
  1. NAPROXEN [Concomitant]
     Indication: PSORIATIC ARTHROPATHY
  2. NAPROXEN [Concomitant]
     Indication: PAIN
  3. LISINOPRIL [Suspect]
     Dosage: 20 MG, DAILY
     Route: 048
  4. NAPROXEN [Concomitant]
     Indication: FIBROMYALGIA
     Dosage: 500 MG, ONE TO THREE TIMES A DAY AS NEEDED
  5. CHANTIX [Suspect]
     Indication: SMOKING CESSATION THERAPY
     Dosage: 0.5 MG, DAILY
     Route: 048
     Dates: start: 20120128, end: 20120101
  6. CETIRIZINE [Concomitant]
     Indication: RHINORRHOEA
     Dosage: 10 MG, DAILY
  7. PRAVASTATIN [Concomitant]
     Indication: BLOOD CHOLESTEROL INCREASED
     Dosage: 20 MG, DAILY
  8. FLUTICASONE PROPIONATE [Concomitant]
     Indication: DYSPNOEA
     Dosage: UNKNOWN DOSE TWO TIMES A DAY ONE IN EACH NOSTRIL
     Route: 045
  9. CHANTIX [Suspect]
     Dosage: 1 MG, 2X/DAY
     Route: 048
     Dates: start: 20120101, end: 20120206
  10. LISINOPRIL [Suspect]
     Indication: BLOOD PRESSURE ABNORMAL
     Dosage: 10 MG, DAILY
     Route: 048

REACTIONS (13)
  - DYSSTASIA [None]
  - VOMITING [None]
  - HALLUCINATION, AUDITORY [None]
  - BLOOD PRESSURE DECREASED [None]
  - DIZZINESS [None]
  - ERYTHEMA [None]
  - URTICARIA [None]
  - HAEMORRHOIDAL HAEMORRHAGE [None]
  - PRURITUS [None]
  - GAIT DISTURBANCE [None]
  - ANXIETY [None]
  - CONSTIPATION [None]
  - NAUSEA [None]
